FAERS Safety Report 12542565 (Version 2)
Quarter: 2016Q3

REPORT INFORMATION
  Report Type: Spontaneous
  Country: US (occurrence: US)
  Receive Date: 20160709
  Receipt Date: 20160822
  Transmission Date: 20161109
  Serious: No
  Sender: FDA-Public Use
  Company Number: US-JNJFOC-20160521612

PATIENT
  Sex: Male
  Weight: 108.86 kg

DRUGS (3)
  1. DEPAKOTE [Concomitant]
     Active Substance: DIVALPROEX SODIUM
     Indication: DISRUPTIVE MOOD DYSREGULATION DISORDER
     Dates: start: 200911, end: 20160805
  2. INVEGA SUSTENNA [Suspect]
     Active Substance: PALIPERIDONE PALMITATE
     Indication: SCHIZOPHRENIA
     Route: 030
     Dates: start: 20160720
  3. INVEGA SUSTENNA [Suspect]
     Active Substance: PALIPERIDONE PALMITATE
     Indication: SCHIZOPHRENIA
     Route: 030
     Dates: start: 20130912, end: 20160805

REACTIONS (2)
  - Attention deficit/hyperactivity disorder [Not Recovered/Not Resolved]
  - Adverse event [Unknown]
